FAERS Safety Report 5023898-5 (Version None)
Quarter: 2006Q2

REPORT INFORMATION
  Report Type: 
  Country: None (occurrence: None)
  Receive Date: 20060426
  Receipt Date: 20060221
  Transmission Date: 20061013
  Serious: Yes (Other)
  Sender: FDA-Public Use
  Company Number: 2006026759

PATIENT
  Age: 84 Year
  Sex: Female
  Weight: 54.4316 kg

DRUGS (11)
  1. LYRICA [Suspect]
     Indication: HERPES ZOSTER
     Dosage: 150 MG (75 MG, 2 IN 1 D), ORAL
     Route: 048
     Dates: start: 20060101
  2. OXYCODONE (OXYCODONE) [Concomitant]
  3. LIPITOR [Concomitant]
  4. SEROQUEL [Concomitant]
  5. ACCUPRIL [Concomitant]
  6. ZOLOFT [Concomitant]
  7. PREVACID [Concomitant]
  8. LEVOXYL [Concomitant]
  9. QUININE SULFATE [Concomitant]
  10. POTASSIUM (POTASSIUM) [Concomitant]
  11. ATARAX [Concomitant]

REACTIONS (1)
  - DIARRHOEA [None]
